FAERS Safety Report 25594760 (Version 1)
Quarter: 2025Q3

REPORT INFORMATION
  Report Type: Spontaneous
  Country: JP (occurrence: JP)
  Receive Date: 20250723
  Receipt Date: 20250723
  Transmission Date: 20251021
  Serious: Yes (Other)
  Sender: ORGANON
  Company Number: JP-ORGANON-O2404JPN000574

PATIENT
  Age: 67 Year
  Sex: Female

DRUGS (2)
  1. ALENDRONATE SODIUM [Suspect]
     Active Substance: ALENDRONATE SODIUM
     Route: 048
  2. SARILUMAB [Suspect]
     Active Substance: SARILUMAB
     Route: 048

REACTIONS (2)
  - Necrotising fasciitis [Recovering/Resolving]
  - Osteonecrosis of jaw [Recovering/Resolving]
